FAERS Safety Report 4419728-2 (Version None)
Quarter: 2004Q3

REPORT INFORMATION
  Report Type: 
  Country: None (occurrence: None)
  Receive Date: 20040805
  Receipt Date: 20040805
  Transmission Date: 20050211
  Serious: Yes (Other)
  Sender: FDA-Public Use
  Company Number: None

PATIENT
  Age: 39 Year
  Sex: Female
  Weight: 72.5755 kg

DRUGS (5)
  1. PAXIL [Suspect]
     Indication: MENOPAUSAL SYMPTOMS
     Dosage: 20MG  QD  ORAL
     Route: 048
     Dates: start: 20030115, end: 20040603
  2. TAMOXIFEN CITRATE [Concomitant]
  3. LOPID [Concomitant]
  4. NEURONTIN [Concomitant]
  5. PERCOCET [Concomitant]

REACTIONS (2)
  - DEPRESSION [None]
  - OFF LABEL USE [None]
